FAERS Safety Report 20066644 (Version 1)
Quarter: 2021Q4

REPORT INFORMATION
  Report Type: Other
  Country: JP (occurrence: None)
  Receive Date: 20211115
  Receipt Date: 20211115
  Transmission Date: 20220303
  Serious: Yes (Other)
  Sender: FDA-Public Use
  Company Number: JP-Saptalis Pharmaceuticals,LLC-000140

PATIENT
  Sex: Male

DRUGS (8)
  1. TRIAMCINOLONE ACETONIDE [Suspect]
     Active Substance: TRIAMCINOLONE ACETONIDE
     Indication: Vision blurred
     Dosage: 1 TRIAMCINOLONE ACETONIDE SUB-TENON INJECTION WAS ADMINISTERED FOR THE BOTH EYES
     Route: 031
  2. AFLIBERCEPT [Concomitant]
     Active Substance: AFLIBERCEPT
     Indication: Vision blurred
     Dosage: ONE IVA WAS ADMINISTERED FOR THE LEFT EYE 5 MONTHS
     Route: 031
  3. PREDNISOLONE [Concomitant]
     Active Substance: PREDNISOLONE
     Indication: Polymyalgia rheumatica
  4. TRIAMCINOLONE ACETONIDE [Suspect]
     Active Substance: TRIAMCINOLONE ACETONIDE
     Indication: Subretinal fluid
     Dosage: 1 TRIAMCINOLONE ACETONIDE SUB-TENON INJECTION WAS ADMINISTERED FOR THE BOTH EYES
  5. AFLIBERCEPT [Concomitant]
     Active Substance: AFLIBERCEPT
     Indication: Retinal oedema
     Dosage: ONE IVA WAS ADMINISTERED FOR THE LEFT EYE 5 MONTHS
     Route: 031
  6. AFLIBERCEPT [Concomitant]
     Active Substance: AFLIBERCEPT
     Indication: Subretinal fluid
     Dosage: ONE IVA WAS ADMINISTERED FOR THE LEFT EYE 5 MONTHS
     Route: 031
  7. PREDNISOLONE [Concomitant]
     Active Substance: PREDNISOLONE
     Indication: Giant cell arteritis
  8. PREDNISOLONE [Concomitant]
     Active Substance: PREDNISOLONE
     Indication: Neoplasm

REACTIONS (3)
  - Retinal oedema [Recovered/Resolved]
  - Disease progression [Recovered/Resolved]
  - Vision blurred [Recovered/Resolved]
